FAERS Safety Report 7741463-3 (Version None)
Quarter: 2011Q3

REPORT INFORMATION
  Report Type: 
  Country: None (occurrence: None)
  Receive Date: 20110909
  Receipt Date: 20110826
  Transmission Date: 20111222
  Serious: Yes (Death, Other)
  Sender: FDA-Public Use
  Company Number: GB-WATSON-2011-14300

PATIENT
  Age: 45 Year
  Sex: Female

DRUGS (11)
  1. FOLIC ACID [Suspect]
     Indication: PRODUCT USED FOR UNKNOWN INDICATION
  2. AZATHIOPRINE [Suspect]
     Indication: SYSTEMIC LUPUS ERYTHEMATOSUS
     Dosage: UNK
  3. CLARITYN                           /00082102/ [Suspect]
     Indication: HYPERSENSITIVITY
     Dosage: 1 DF, DAILY
     Route: 048
  4. CORTICOSTEROIDS [Suspect]
     Indication: SYSTEMIC LUPUS ERYTHEMATOSUS
  5. MABTHERA [Suspect]
     Indication: HERPES ZOSTER
     Dosage: 375 MG/M2, X 4 WEEKS
  6. CALCICHEW D3 [Suspect]
     Indication: OSTEOPOROSIS
     Dosage: 2 DF, DAILY
     Route: 048
     Dates: start: 20030615
  7. ACYCLOVIR [Suspect]
     Indication: PRODUCT USED FOR UNKNOWN INDICATION
  8. CYCLOPHOSPHAMIDE [Suspect]
     Indication: SYSTEMIC LUPUS ERYTHEMATOSUS
  9. PREDNISOLONE [Suspect]
     Indication: SYSTEMIC LUPUS ERYTHEMATOSUS
     Dosage: UNK
  10. AMLODIPINE [Suspect]
     Indication: RAYNAUD'S PHENOMENON
     Dosage: 5 MG, DAILY
     Route: 048
     Dates: start: 20020615
  11. MABTHERA [Suspect]
     Dosage: 375 MG/KG, SINGLE

REACTIONS (17)
  - RESPIRATORY FAILURE [None]
  - PNEUMONIA [None]
  - VISION BLURRED [None]
  - PROGRESSIVE MULTIFOCAL LEUKOENCEPHALOPATHY [None]
  - JC VIRUS INFECTION [None]
  - DYSPHAGIA [None]
  - BALANCE DISORDER [None]
  - PAST-POINTING [None]
  - BONE MARROW TOXICITY [None]
  - B-LYMPHOCYTE COUNT DECREASED [None]
  - DYSARTHRIA [None]
  - SPEECH DISORDER [None]
  - HERPES ZOSTER [None]
  - ATAXIA [None]
  - WEIGHT DECREASED [None]
  - CEREBELLAR SYNDROME [None]
  - NYSTAGMUS [None]
